FAERS Safety Report 19087271 (Version 1)
Quarter: 2021Q2

REPORT INFORMATION
  Report Type: Spontaneous
  Country: AT (occurrence: AT)
  Receive Date: 20210402
  Receipt Date: 20210402
  Transmission Date: 20210717
  Serious: Yes (Other)
  Sender: FDA-Public Use
  Company Number: AT-OTSUKA-2017_006119

PATIENT
  Age: 24 Year
  Sex: Female

DRUGS (2)
  1. ABILIFY MAINTENA [Suspect]
     Active Substance: ARIPIPRAZOLE
     Indication: CEREBRAL DISORDER
  2. ABILIFY MAINTENA [Suspect]
     Active Substance: ARIPIPRAZOLE
     Indication: PSYCHOTIC DISORDER
     Dosage: 400 MG, UNK (15 TIMES)
     Route: 030

REACTIONS (2)
  - Off label use [Unknown]
  - Optic atrophy [Unknown]

NARRATIVE: CASE EVENT DATE: 20161113
